FAERS Safety Report 22367306 (Version 2)
Quarter: 2023Q2

REPORT INFORMATION
  Report Type: Report from Study
  Country: US (occurrence: US)
  Receive Date: 20230525
  Receipt Date: 20230613
  Transmission Date: 20230722
  Serious: No
  Sender: FDA-Public Use
  Company Number: US-SANOFI-01625934

PATIENT
  Age: 39 Year
  Sex: Female

DRUGS (2)
  1. DUPILUMAB [Suspect]
     Active Substance: DUPILUMAB
     Indication: Endometriosis
     Dosage: 600 MG, 1X
     Route: 058
     Dates: start: 20230302, end: 20230302
  2. DUPILUMAB [Suspect]
     Active Substance: DUPILUMAB
     Indication: Asthma
     Dosage: 300 MG, QOW
     Route: 058

REACTIONS (3)
  - Product use in unapproved indication [Unknown]
  - Accidental exposure to product [Unknown]
  - Product preparation error [Unknown]

NARRATIVE: CASE EVENT DATE: 20230608
